FAERS Safety Report 25807921 (Version 1)
Quarter: 2025Q3

REPORT INFORMATION
  Report Type: Report from Study
  Country: US (occurrence: US)
  Receive Date: 20250916
  Receipt Date: 20250916
  Transmission Date: 20251021
  Serious: Yes (Hospitalization)
  Sender: ABBVIE
  Company Number: US-ABBVIE-6370010

PATIENT
  Age: 73 Year
  Sex: Female
  Weight: 63.502 kg

DRUGS (5)
  1. HUMIRA [Suspect]
     Active Substance: ADALIMUMAB
     Indication: Pyoderma gangrenosum
     Route: 058
  2. HUMIRA [Suspect]
     Active Substance: ADALIMUMAB
     Route: 058
     Dates: start: 20250613
  3. HUMIRA [Suspect]
     Active Substance: ADALIMUMAB
     Route: 058
     Dates: start: 20250617
  4. ROSUVASTATIN [Concomitant]
     Active Substance: ROSUVASTATIN
     Indication: Blood cholesterol
  5. ATENOLOL [Concomitant]
     Active Substance: ATENOLOL
     Indication: Hypertension

REACTIONS (5)
  - Cystitis [Recovered/Resolved]
  - Lethargy [Recovered/Resolved]
  - Immunodeficiency [Recovered/Resolved]
  - Pyrexia [Unknown]
  - Kidney infection [Recovered/Resolved]

NARRATIVE: CASE EVENT DATE: 20250701
